FAERS Safety Report 8922952 (Version 1)
Quarter: 2012Q4

REPORT INFORMATION
  Report Type: Spontaneous
  Country: US (occurrence: None)
  Receive Date: 20121115
  Receipt Date: 20121115
  Transmission Date: 20130627
  Serious: No
  Sender: FDA-Public Use
  Company Number: None

PATIENT
  Age: 44 Year
  Sex: Male

DRUGS (3)
  1. PROPOFOL [Suspect]
     Indication: ANESTHESIA
     Route: 042
     Dates: start: 20121012, end: 20121012
  2. SEVO [Concomitant]
  3. FENTANYL [Concomitant]

REACTIONS (3)
  - Tonic clonic movements [None]
  - Posturing [None]
  - Jaw disorder [None]
